FAERS Safety Report 7114506-8 (Version None)
Quarter: 2010Q4

REPORT INFORMATION
  Report Type: 
  Country: None (occurrence: None)
  Receive Date: 20101119
  Receipt Date: 20101108
  Transmission Date: 20110411
  Serious: Yes (Other)
  Sender: FDA-Public Use
  Company Number: US-AMGEN-KDL237655

PATIENT

DRUGS (3)
  1. ENBREL [Suspect]
     Indication: PSORIATIC ARTHROPATHY
     Dosage: 50 MG, UNK
     Route: 058
     Dates: start: 20070601
  2. ENBREL [Suspect]
     Indication: PSORIASIS
     Dates: start: 20070604
  3. TREXALL [Concomitant]
     Dosage: 1 MG, QWK
     Dates: start: 20050101

REACTIONS (8)
  - BACK INJURY [None]
  - BENIGN NEOPLASM OF SKIN [None]
  - INJECTION SITE ERYTHEMA [None]
  - INJECTION SITE WARMTH [None]
  - PSORIASIS [None]
  - ROAD TRAFFIC ACCIDENT [None]
  - SKIN CANCER [None]
  - STRESS [None]
